FAERS Safety Report 13642392 (Version 1)
Quarter: 2017Q2

REPORT INFORMATION
  Report Type: Spontaneous
  Country: IT (occurrence: IT)
  Receive Date: 20170612
  Receipt Date: 20170612
  Transmission Date: 20170830
  Serious: Yes (Life-Threatening, Other)
  Sender: FDA-Public Use
  Company Number: IT-GLAXOSMITHKLINE-IT2017089127

PATIENT
  Age: 60 Year
  Sex: Female

DRUGS (2)
  1. BETAMETHASONE. [Concomitant]
     Active Substance: BETAMETHASONE
     Indication: HERPES SIMPLEX MENINGOMYELITIS
     Dosage: 8 MG, UNK
     Route: 065
  2. ACICLOVIR [Suspect]
     Active Substance: ACYCLOVIR
     Indication: HERPES SIMPLEX MENINGOMYELITIS
     Dosage: 10 MG/KG, TID
     Route: 042

REACTIONS (1)
  - Drug ineffective [Unknown]
